FAERS Safety Report 5603706-1 (Version None)
Quarter: 2008Q1

REPORT INFORMATION
  Report Type: 
  Country: None (occurrence: None)
  Receive Date: 20080128
  Receipt Date: 20071107
  Transmission Date: 20080703
  Serious: No
  Sender: FDA-Public Use
  Company Number: US-BAYER-US-2007-042559

PATIENT
  Sex: Female

DRUGS (1)
  1. ANGELIQ [Suspect]
     Route: 048
     Dates: start: 20071107

REACTIONS (2)
  - DRUG PRESCRIBING ERROR [None]
  - UNEVALUABLE EVENT [None]
